FAERS Safety Report 10413296 (Version 2)
Quarter: 2014Q3

REPORT INFORMATION
  Report Type: Spontaneous
  Country: BR (occurrence: BR)
  Receive Date: 20140827
  Receipt Date: 20140827
  Transmission Date: 20150326
  Serious: Yes (Death, Hospitalization, Other)
  Sender: FDA-Public Use
  Company Number: BR-PFIZER INC-2014222452

PATIENT
  Sex: Female

DRUGS (1)
  1. FRONTAL [Suspect]
     Active Substance: ALPRAZOLAM
     Dosage: UNK
     Route: 048
     Dates: start: 201408, end: 201408

REACTIONS (16)
  - Renal impairment [Unknown]
  - Bacteraemia [Unknown]
  - Pain in extremity [Not Recovered/Not Resolved]
  - Gait disturbance [Unknown]
  - Lung disorder [Unknown]
  - Cardiac disorder [Unknown]
  - Hallucination [Unknown]
  - Cough [Unknown]
  - Coma [Unknown]
  - Somnolence [Unknown]
  - Balance disorder [Unknown]
  - Death [Fatal]
  - Choking sensation [Unknown]
  - Varicose vein [Unknown]
  - Hypersensitivity [Unknown]
  - Asthenia [Unknown]

NARRATIVE: CASE EVENT DATE: 201408
